FAERS Safety Report 7389477-X (Version None)
Quarter: 2011Q2

REPORT INFORMATION
  Report Type: 
  Country: None (occurrence: None)
  Receive Date: 20110401
  Receipt Date: 20110325
  Transmission Date: 20111010
  Serious: Yes (Life-Threatening, Hospitalization, Other)
  Sender: FDA-Public Use
  Company Number: JP-BRISTOL-MYERS SQUIBB COMPANY-15592066

PATIENT
  Age: 87 Year
  Sex: Male

DRUGS (12)
  1. SIGMART [Concomitant]
     Indication: HYPERTENSION
     Route: 048
  2. MAGLAX [Concomitant]
     Indication: CONSTIPATION
     Dosage: FINE GRANULES
  3. GASTER [Concomitant]
     Indication: PROPHYLAXIS
     Dosage: ORODISPERSIBLE CR TABS
     Route: 048
  4. CIBENOL TABS [Suspect]
     Indication: ATRIAL FIBRILLATION
     Route: 048
     Dates: end: 20100812
  5. ASPENON [Suspect]
     Indication: ATRIAL FIBRILLATION
     Dosage: CAPSULE
     Route: 048
     Dates: end: 20100812
  6. WARFARIN SODIUM [Suspect]
     Indication: ATRIAL FIBRILLATION
     Route: 048
     Dates: end: 20100812
  7. ARICEPT [Concomitant]
     Indication: DEMENTIA
     Dosage: ORODISPERSIBLE CR TABS
     Route: 048
  8. LASIX [Concomitant]
     Indication: HYPERTENSION
     Route: 048
  9. PLAVIX [Suspect]
     Indication: ATRIAL FIBRILLATION
     Route: 048
     Dates: end: 20100812
  10. AMLODIPINE [Concomitant]
     Indication: HYPERTENSION
     Route: 048
  11. LIPITOR [Concomitant]
     Indication: HYPERLIPIDAEMIA
     Dosage: TABS
  12. DIOVAN [Concomitant]
     Indication: HYPERTENSION
     Dosage: TAB
     Route: 048

REACTIONS (16)
  - DEMENTIA [None]
  - VENTRICULAR TACHYCARDIA [None]
  - BLOOD LACTATE DEHYDROGENASE INCREASED [None]
  - ANAEMIA [None]
  - TOXICITY TO VARIOUS AGENTS [None]
  - CONDITION AGGRAVATED [None]
  - INTERNATIONAL NORMALISED RATIO INCREASED [None]
  - BLOOD ALBUMIN DECREASED [None]
  - SHOCK [None]
  - RENAL IMPAIRMENT [None]
  - GASTROINTESTINAL HAEMORRHAGE [None]
  - BLOOD PRESSURE DECREASED [None]
  - VOLUME BLOOD DECREASED [None]
  - LIVER DISORDER [None]
  - ALANINE AMINOTRANSFERASE INCREASED [None]
  - ASPARTATE AMINOTRANSFERASE INCREASED [None]
